FAERS Safety Report 6304272-8 (Version None)
Quarter: 2009Q3

REPORT INFORMATION
  Report Type: 
  Country: None (occurrence: None)
  Receive Date: 20090811
  Receipt Date: 20090805
  Transmission Date: 20100115
  Serious: Yes (Death)
  Sender: FDA-Public Use
  Company Number: US-ASTRAZENECA-2007UW13907

PATIENT
  Age: 641 Month
  Sex: Male

DRUGS (7)
  1. SEROQUEL [Suspect]
     Indication: BIPOLAR DISORDER
     Dosage: 400 MG - 800 MG
     Route: 048
     Dates: start: 19960101
  2. SEROQUEL [Suspect]
     Indication: DEPRESSION
     Dosage: 400 MG - 800 MG
     Route: 048
     Dates: start: 19960101
  3. SEROQUEL [Suspect]
     Dosage: 400MG - 1000MG
     Route: 048
     Dates: start: 20060123, end: 20061112
  4. SEROQUEL [Suspect]
     Dosage: 400MG - 1000MG
     Route: 048
     Dates: start: 20060123, end: 20061112
  5. THORAZINE [Concomitant]
     Dates: start: 19820101, end: 20020101
  6. CELEXA [Concomitant]
  7. DEPAKOTE [Concomitant]

REACTIONS (2)
  - DEATH [None]
  - TYPE 2 DIABETES MELLITUS [None]
